FAERS Safety Report 23503246 (Version 1)
Quarter: 2024Q1

REPORT INFORMATION
  Report Type: Spontaneous
  Country: US (occurrence: US)
  Receive Date: 20240208
  Receipt Date: 20240208
  Transmission Date: 20240409
  Serious: No
  Sender: FDA-Public Use
  Company Number: US-JNJFOC-20240171420

PATIENT
  Sex: Male

DRUGS (1)
  1. HALDOL DECANOATE [Suspect]
     Active Substance: HALOPERIDOL DECANOATE
     Indication: Product used for unknown indication
     Route: 030
     Dates: end: 1990

REACTIONS (6)
  - Deja vu [Unknown]
  - Anxiety [Unknown]
  - Panic disorder [Unknown]
  - Feeling abnormal [Unknown]
  - Pain [Unknown]
  - Treatment noncompliance [Unknown]
